FAERS Safety Report 6626632-8 (Version None)
Quarter: 2010Q1

REPORT INFORMATION
  Report Type: 
  Country: None (occurrence: None)
  Receive Date: 20100309
  Receipt Date: 20100309
  Transmission Date: 20100710
  Serious: Yes (Other)
  Sender: FDA-Public Use
  Company Number: None

PATIENT
  Sex: Female
  Weight: 62.5964 kg

DRUGS (2)
  1. NUVARING [Suspect]
     Indication: CONTRACEPTION
     Dosage: 1 RING 3 WEEKS
     Dates: start: 20100203, end: 20100307
  2. NUVARING [Suspect]
     Indication: HAEMORRHAGE
     Dosage: 1 RING 3 WEEKS
     Dates: start: 20100203, end: 20100307

REACTIONS (4)
  - ANORGASMIA [None]
  - DIARRHOEA [None]
  - FATIGUE [None]
  - NAUSEA [None]
